FAERS Safety Report 10176502 (Version 2)
Quarter: 2014Q2

REPORT INFORMATION
  Report Type: Spontaneous
  Country: CH (occurrence: CH)
  Receive Date: 20140516
  Receipt Date: 20140530
  Transmission Date: 20141212
  Serious: Yes (Hospitalization)
  Sender: FDA-Public Use
  Company Number: CH-PFIZER INC-2014132546

PATIENT
  Age: 53 Year
  Sex: Female

DRUGS (8)
  1. TRIATEC [Suspect]
     Indication: HYPERTENSION
     Dosage: 1 DF, DAILY
     Route: 048
     Dates: start: 20140330, end: 20140404
  2. AUGMENTIN [Suspect]
     Indication: DIVERTICULITIS
     Dosage: 1 DF, 3X/DAY
     Route: 048
     Dates: start: 20140329, end: 20140404
  3. EUTHYROX [Concomitant]
     Dosage: UNK
  4. ASPIRIN CARDIO [Concomitant]
     Dosage: UNK
  5. CONCOR [Concomitant]
     Dosage: UNK
  6. SIMVASTATIN [Concomitant]
     Dosage: UNK
  7. MAGNESIOCARD [Concomitant]
     Dosage: UNK
  8. CIMIFEMIN [Concomitant]
     Dosage: UNK

REACTIONS (3)
  - Drug-induced liver injury [Recovering/Resolving]
  - Hepatocellular injury [Recovering/Resolving]
  - Acute myocardial infarction [Unknown]
